FAERS Safety Report 6079157-5 (Version None)
Quarter: 2009Q1

REPORT INFORMATION
  Report Type: 
  Country: None (occurrence: None)
  Receive Date: 20090216
  Receipt Date: 20090206
  Transmission Date: 20090719
  Serious: Yes (Hospitalization)
  Sender: FDA-Public Use
  Company Number: A0768671A

PATIENT
  Age: 63 Year
  Sex: Male

DRUGS (5)
  1. AVANDIA [Suspect]
     Dosage: 4MG UNKNOWN
     Route: 065
     Dates: end: 20060410
  2. AVANDAMET [Suspect]
     Dosage: 2MG UNKNOWN
     Route: 065
     Dates: start: 20050602, end: 20051027
  3. ACTOS [Concomitant]
     Dates: start: 20050919
  4. METFORMIN HCL [Concomitant]
     Dates: start: 20031201, end: 20060503
  5. GLUCOTROL [Concomitant]
     Dates: start: 20050128, end: 20060503

REACTIONS (5)
  - BLOOD CHOLESTEROL INCREASED [None]
  - CARDIAC FAILURE CONGESTIVE [None]
  - CARDIOMEGALY [None]
  - HYPERTENSION [None]
  - PULMONARY CONGESTION [None]
